FAERS Safety Report 21866938 (Version 1)
Quarter: 2023Q1

REPORT INFORMATION
  Report Type: Spontaneous
  Country: FR (occurrence: FR)
  Receive Date: 20230116
  Receipt Date: 20230116
  Transmission Date: 20230417
  Serious: Yes (Other)
  Sender: FDA-Public Use
  Company Number: FR-ORGANON-O2212FRA001404

PATIENT
  Age: 45 Year
  Sex: Female

DRUGS (2)
  1. NEXPLANON [Suspect]
     Active Substance: ETONOGESTREL
     Dosage: 1 IMPLANT
     Route: 059
     Dates: start: 20221214, end: 20221215
  2. NEXPLANON [Suspect]
     Active Substance: ETONOGESTREL
     Dosage: 1 IMPLANT
     Route: 059
     Dates: start: 20221214, end: 20221215

REACTIONS (6)
  - Device expulsion [Recovered/Resolved]
  - Procedural pain [Unknown]
  - Implant site scar [Not Recovered/Not Resolved]
  - Implant site pain [Not Recovered/Not Resolved]
  - Device use error [Unknown]
  - Overdose [Unknown]

NARRATIVE: CASE EVENT DATE: 20221214
